FAERS Safety Report 12077870 (Version 1)
Quarter: 2016Q1

REPORT INFORMATION
  Report Type: Spontaneous
  Country: FR (occurrence: FR)
  Receive Date: 20160215
  Receipt Date: 20160215
  Transmission Date: 20160526
  Serious: Yes (Life-Threatening, Hospitalization, Other)
  Sender: FDA-Public Use
  Company Number: FR-ELI_LILLY_AND_COMPANY-FR201602002994

PATIENT
  Age: 63 Year
  Sex: Female

DRUGS (9)
  1. GRANOCYTE [Suspect]
     Active Substance: LENOGRASTIM
     Indication: PRODUCT USED FOR UNKNOWN INDICATION
     Dosage: UNK, UNKNOWN
     Route: 058
     Dates: start: 20151230, end: 20151231
  2. GEMZAR [Suspect]
     Active Substance: GEMCITABINE HYDROCHLORIDE
     Indication: PRODUCT USED FOR UNKNOWN INDICATION
     Dosage: 1500 MG, UNKNOWN
     Route: 042
     Dates: start: 20151229, end: 20151229
  3. FRESUBIN                           /07459901/ [Concomitant]
     Indication: GENERAL PHYSICAL HEALTH DETERIORATION
     Dosage: UNK, UNKNOWN
     Route: 065
     Dates: start: 201512
  4. CARBOPLATINE [Suspect]
     Active Substance: CARBOPLATIN
     Indication: PRODUCT USED FOR UNKNOWN INDICATION
     Dosage: 125 MG, UNKNOWN
     Route: 042
     Dates: start: 20151229, end: 20151229
  5. PARACETAMOL [Concomitant]
     Active Substance: ACETAMINOPHEN
     Indication: GENERAL PHYSICAL HEALTH DETERIORATION
     Dosage: UNK, PRN
     Route: 065
     Dates: start: 201512
  6. ZOPHREN                            /00955301/ [Suspect]
     Active Substance: ONDANSETRON
     Indication: PRODUCT USED FOR UNKNOWN INDICATION
     Dosage: 8 MG, UNKNOWN
     Route: 048
     Dates: start: 20151229
  7. PRIMPERAN [Concomitant]
     Active Substance: METOCLOPRAMIDE HYDROCHLORIDE
     Indication: GENERAL PHYSICAL HEALTH DETERIORATION
     Dosage: 10 MG, TID
     Route: 048
     Dates: start: 201512, end: 20160101
  8. ESOMEPRAZOLE [Concomitant]
     Active Substance: ESOMEPRAZOLE
     Indication: GENERAL PHYSICAL HEALTH DETERIORATION
     Dosage: 20 MG, UNKNOWN
     Route: 048
     Dates: start: 201512, end: 20160101
  9. SOLUPRED                           /00016201/ [Suspect]
     Active Substance: PREDNISOLONE
     Indication: PRODUCT USED FOR UNKNOWN INDICATION
     Dosage: 78 MG, UNKNOWN
     Route: 048
     Dates: start: 20151229

REACTIONS (4)
  - Pyelonephritis [Unknown]
  - Renal impairment [Unknown]
  - Posterior reversible encephalopathy syndrome [Recovering/Resolving]
  - Encephalitis [Unknown]

NARRATIVE: CASE EVENT DATE: 201512
